FAERS Safety Report 9330083 (Version 3)
Quarter: 2013Q3

REPORT INFORMATION
  Report Type: Spontaneous
  Country: US (occurrence: US)
  Receive Date: 20130604
  Receipt Date: 20130801
  Transmission Date: 20140515
  Serious: Yes (Hospitalization)
  Sender: FDA-Public Use
  Company Number: US-CELGENEUS-163-21880-13043602

PATIENT
  Age: 68 Year
  Sex: Female
  Weight: 81.72 kg

DRUGS (22)
  1. REVLIMID [Suspect]
     Indication: PLASMA CELL MYELOMA
     Dosage: 15 MILLIGRAM
     Route: 048
     Dates: start: 20130222, end: 20130505
  2. VELCADE [Suspect]
     Indication: PRODUCT USED FOR UNKNOWN INDICATION
     Route: 065
  3. VELCADE [Suspect]
     Route: 065
  4. CALCIUM [Concomitant]
     Indication: PRODUCT USED FOR UNKNOWN INDICATION
     Route: 048
  5. PROCARDIA XL [Concomitant]
     Indication: PRODUCT USED FOR UNKNOWN INDICATION
     Dosage: 60 MILLIGRAM
     Route: 048
  6. STOOL SOFTENER [Concomitant]
     Indication: PRODUCT USED FOR UNKNOWN INDICATION
     Dosage: 250
     Route: 065
  7. SYNTHROID [Concomitant]
     Indication: PRODUCT USED FOR UNKNOWN INDICATION
     Dosage: 75 MICROGRAM
     Route: 048
  8. ZOCOR [Concomitant]
     Indication: PRODUCT USED FOR UNKNOWN INDICATION
     Dosage: 40 MILLIGRAM
     Route: 065
  9. KLOR-CON [Concomitant]
     Indication: PRODUCT USED FOR UNKNOWN INDICATION
     Dosage: 30 MILLIEQUIVALENTS
     Route: 048
  10. KLOR-CON [Concomitant]
     Route: 048
  11. KLOR-CON [Concomitant]
     Dosage: 60 MILLIEQUIVALENTS
     Route: 048
  12. ASA [Concomitant]
     Indication: PRODUCT USED FOR UNKNOWN INDICATION
     Dosage: 325 MILLIGRAM
     Route: 048
  13. ATENOLOL [Concomitant]
     Indication: PRODUCT USED FOR UNKNOWN INDICATION
     Dosage: 50 MILLIGRAM
     Route: 048
  14. DOCUSATE SODIUM [Concomitant]
     Indication: PRODUCT USED FOR UNKNOWN INDICATION
     Route: 048
  15. GLIPIZIDE [Concomitant]
     Indication: PRODUCT USED FOR UNKNOWN INDICATION
     Dosage: 5 MILLIGRAM
     Route: 048
  16. ONDANSETRON HCL [Concomitant]
     Indication: NAUSEA
     Dosage: 24 MILLIGRAM
     Route: 048
  17. DEXAMETHASONE [Concomitant]
     Indication: PRODUCT USED FOR UNKNOWN INDICATION
     Dosage: 20 MILLIGRAM
     Route: 048
  18. ACYCLOVIR [Concomitant]
     Indication: PRODUCT USED FOR UNKNOWN INDICATION
     Dosage: 800 MILLIGRAM
     Route: 065
  19. SPIRONOLACTONE [Concomitant]
     Indication: PRODUCT USED FOR UNKNOWN INDICATION
     Route: 065
  20. IMODIUM [Concomitant]
     Indication: DIARRHOEA
     Route: 065
  21. ESCITALOPRAM OXALATE [Concomitant]
     Indication: PRODUCT USED FOR UNKNOWN INDICATION
     Dosage: 10 MILLIGRAM
     Route: 048
  22. OXYCODONE HCL [Concomitant]
     Indication: PAIN
     Route: 048

REACTIONS (6)
  - Atrial flutter [Recovering/Resolving]
  - Pulmonary embolism [Recovered/Resolved]
  - Deep vein thrombosis [Recovering/Resolving]
  - Atrial fibrillation [Recovering/Resolving]
  - Fatigue [Not Recovered/Not Resolved]
  - Neuropathy peripheral [Unknown]
